FAERS Safety Report 23392624 (Version 2)
Quarter: 2024Q1

REPORT INFORMATION
  Report Type: Spontaneous
  Country: GB (occurrence: GB)
  Receive Date: 20240111
  Receipt Date: 20240119
  Transmission Date: 20240410
  Serious: Yes (Life-Threatening, Hospitalization, Other)
  Sender: FDA-Public Use
  Company Number: None

PATIENT
  Age: 80 Year
  Sex: Male

DRUGS (1)
  1. PEMBROLIZUMAB [Suspect]
     Active Substance: PEMBROLIZUMAB
     Indication: Neoplasm malignant
     Route: 041
     Dates: start: 20190301, end: 20190601

REACTIONS (10)
  - Atrial fibrillation [Unknown]
  - Essential thrombocythaemia [Unknown]
  - Hypertension [Unknown]
  - Carotid artery stenosis [Unknown]
  - Metastatic malignant melanoma [Unknown]
  - Mitral valve incompetence [Unknown]
  - Tricuspid valve incompetence [Unknown]
  - Cerebral infarction [Unknown]
  - Left ventricular dysfunction [Unknown]
  - Myocarditis [Unknown]

NARRATIVE: CASE EVENT DATE: 20190101
